FAERS Safety Report 12843888 (Version 1)
Quarter: 2016Q4

REPORT INFORMATION
  Report Type: Spontaneous
  Country: US (occurrence: US)
  Receive Date: 20161013
  Receipt Date: 20161013
  Transmission Date: 20170207
  Serious: Yes (Other)
  Sender: FDA-Public Use
  Company Number: None

PATIENT
  Age: 56 Year
  Sex: Female
  Weight: 81.8 kg

DRUGS (2)
  1. GEMCITABINE 1000 MG/M2 WEEK [Suspect]
     Active Substance: GEMCITABINE HYDROCHLORIDE
     Indication: OVARIAN CANCER
     Dosage: GAMCITABINE 2000 MG - WEEKLY; DAY 1, 8, 15 - IV
     Route: 042
     Dates: start: 20160929
  2. DISULFIRAM 250 MG/DAY PO [Suspect]
     Active Substance: DISULFIRAM
     Indication: OVARIAN CANCER
     Route: 048
     Dates: start: 20160929

REACTIONS (6)
  - Anaemia [None]
  - Thrombocytopenia [None]
  - Confusional state [None]
  - Dehydration [None]
  - General physical health deterioration [None]
  - Fatigue [None]

NARRATIVE: CASE EVENT DATE: 20161009
